FAERS Safety Report 14904912 (Version 1)
Quarter: 2018Q2

REPORT INFORMATION
  Report Type: Spontaneous
  Country: US (occurrence: US)
  Receive Date: 20180517
  Receipt Date: 20180517
  Transmission Date: 20180711
  Serious: Yes (Other)
  Sender: FDA-Public Use
  Company Number: US-SA-2017SA198435

PATIENT
  Age: 65 Year
  Sex: Female

DRUGS (3)
  1. LANTUS SOLOSTAR [Suspect]
     Active Substance: INSULIN GLARGINE
     Indication: TYPE 2 DIABETES MELLITUS
     Dosage: DOSE: 25 U AT NOON/20?U PM
     Route: 051
     Dates: start: 2012
  2. SOLOSTAR [Suspect]
     Active Substance: DEVICE
     Indication: TYPE 2 DIABETES MELLITUS
     Dates: start: 2012
  3. APIDRA [Concomitant]
     Active Substance: INSULIN GLULISINE
     Route: 065

REACTIONS (5)
  - Glycosylated haemoglobin increased [Unknown]
  - Product use issue [Unknown]
  - Visual impairment [Unknown]
  - Condition aggravated [Unknown]
  - Cataract [Unknown]
